FAERS Safety Report 11054880 (Version 1)
Quarter: 2015Q2

REPORT INFORMATION
  Report Type: Spontaneous
  Country: US (occurrence: None)
  Receive Date: 20150421
  Receipt Date: 20150421
  Transmission Date: 20150821
  Serious: Yes (Disabling)
  Sender: FDA-Public Use
  Company Number: None

PATIENT
  Sex: Female
  Weight: 51.26 kg

DRUGS (7)
  1. PRAMIPEXOLE 1 MG. GENERIC EQUIVILENT FOR MIRAPEX 1 MG. GLENMARK PHARMA [Suspect]
     Active Substance: PRAMIPEXOLE
     Indication: RESTLESS LEGS SYNDROME
     Route: 048
     Dates: start: 2010
  2. REMERON [Concomitant]
     Active Substance: MIRTAZAPINE
  3. NEXIUM [Concomitant]
     Active Substance: ESOMEPRAZOLE MAGNESIUM
  4. IBUPROFEN. [Concomitant]
     Active Substance: IBUPROFEN
  5. NEURONTIN [Concomitant]
     Active Substance: GABAPENTIN
  6. ZANTAC [Concomitant]
     Active Substance: RANITIDINE HYDROCHLORIDE
  7. ADVAIR HFA [Concomitant]
     Active Substance: FLUTICASONE PROPIONATE\SALMETEROL XINAFOATE

REACTIONS (3)
  - Quality of life decreased [None]
  - Musculoskeletal stiffness [None]
  - Activities of daily living impaired [None]

NARRATIVE: CASE EVENT DATE: 2010
